FAERS Safety Report 10686500 (Version 1)
Quarter: 2020Q3

REPORT INFORMATION
  Report Type: Spontaneous
  Country: GB (occurrence: GB)
  Receive Date: 20150101
  Receipt Date: 20150101
  Transmission Date: 20201105
  Serious: Yes (Other)
  Sender: FDA-Public Use
  Company Number: GB-ROCHE-1516351

PATIENT
  Age: 67 Year
  Sex: Female
  Weight: 67.12 kg

DRUGS (4)
  1. IBUPROFEN. [Concomitant]
     Active Substance: IBUPROFEN
     Route: 065
  2. BECLOMETHASONE DIPROPIONATE [Concomitant]
     Active Substance: BECLOMETHASONE DIPROPIONATE
     Route: 065
  3. IBANDRONIC ACID. [Suspect]
     Active Substance: IBANDRONIC ACID
     Indication: OSTEOPOROSIS
     Route: 065
     Dates: start: 20141102, end: 20141102
  4. ACLIDINIUM BROMIDE. [Concomitant]
     Active Substance: ACLIDINIUM BROMIDE
     Route: 055

REACTIONS (9)
  - Abdominal pain [Recovered/Resolved with Sequelae]
  - Bladder pain [Recovered/Resolved with Sequelae]
  - Chills [Recovered/Resolved]
  - Night sweats [Recovered/Resolved]
  - Nausea [Unknown]
  - Arthralgia [Recovered/Resolved]
  - Back pain [Recovered/Resolved]
  - Abdominal distension [Unknown]
  - Decreased appetite [Unknown]

NARRATIVE: CASE EVENT DATE: 20141109
